FAERS Safety Report 15065790 (Version 1)
Quarter: 2018Q2

REPORT INFORMATION
  Report Type: Spontaneous
  Country: QA (occurrence: QA)
  Receive Date: 20180626
  Receipt Date: 20180626
  Transmission Date: 20180711
  Serious: Yes (Other)
  Sender: FDA-Public Use
  Company Number: QA-SUN PHARMACEUTICAL INDUSTRIES LTD-2018R1-176685

PATIENT
  Age: 29 Year
  Sex: Male

DRUGS (1)
  1. IMATINIB [Suspect]
     Active Substance: IMATINIB
     Indication: POLYCYTHAEMIA VERA
     Route: 065

REACTIONS (2)
  - Congenital methaemoglobinaemia [Unknown]
  - Condition aggravated [Unknown]
